FAERS Safety Report 5748515-8 (Version None)
Quarter: 2008Q2

REPORT INFORMATION
  Report Type: 
  Country: None (occurrence: None)
  Receive Date: 20080520
  Receipt Date: 20080506
  Transmission Date: 20081010
  Serious: Yes (Life-Threatening)
  Sender: FDA-Public Use
  Company Number: HECT-1000011

PATIENT
  Sex: Male

DRUGS (3)
  1. HECTOROL [Suspect]
     Indication: PROSTATE CANCER METASTATIC
     Dosage: 10 UG, QD, ORAL
     Route: 048
  2. DOCETAXEL (DOCETAXEL) INJECTION [Concomitant]
  3. DEXAMETHASONE TAB [Concomitant]

REACTIONS (4)
  - DYSPNOEA [None]
  - EMBOLISM [None]
  - HYPERCALCAEMIA [None]
  - THROMBOSIS [None]
